FAERS Safety Report 10510030 (Version 1)
Quarter: 2014Q4

REPORT INFORMATION
  Report Type: Spontaneous
  Country: US (occurrence: None)
  Receive Date: 20141008
  Receipt Date: 20141008
  Transmission Date: 20150528
  Serious: Yes (Other)
  Sender: FDA-Public Use
  Company Number: 2014PAC00046

PATIENT
  Age: 19 Year
  Sex: Female

DRUGS (2)
  1. CIPROFLOXACIN. [Suspect]
     Active Substance: CIPROFLOXACIN
     Indication: VAGINAL INFECTION
  2. FLUCONAZOLE (FLUCONAZOLE) [Concomitant]
     Active Substance: FLUCONAZOLE

REACTIONS (2)
  - Stevens-Johnson syndrome [None]
  - Koebner phenomenon [None]
